FAERS Safety Report 19511489 (Version 1)
Quarter: 2021Q3

REPORT INFORMATION
  Report Type: Spontaneous
  Country: US (occurrence: US)
  Receive Date: 20210709
  Receipt Date: 20210709
  Transmission Date: 20211014
  Serious: No
  Sender: FDA-Public Use
  Company Number: None

PATIENT

DRUGS (1)
  1. HEPARIN SODIUM 10,000 UNITS/ML [Suspect]
     Active Substance: HEPARIN SODIUM
     Dates: start: 20210616, end: 20210616

REACTIONS (2)
  - Product complaint [None]
  - Coagulation time shortened [None]

NARRATIVE: CASE EVENT DATE: 20210616
